FAERS Safety Report 10226270 (Version 1)
Quarter: 2014Q2

REPORT INFORMATION
  Report Type: Spontaneous
  Country: IT (occurrence: IT)
  Receive Date: 20140609
  Receipt Date: 20140609
  Transmission Date: 20141212
  Serious: Yes (Hospitalization)
  Sender: FDA-Public Use
  Company Number: IT-TEVA-485382ISR

PATIENT
  Age: 43 Year
  Sex: Male

DRUGS (3)
  1. LORAZEPAM [Suspect]
     Indication: INSOMNIA
     Dosage: 3 MG DAILY
     Route: 048
     Dates: start: 20110427, end: 20120427
  2. ALPRAZOLAM [Suspect]
     Indication: INSOMNIA
     Dosage: 2 MG DAILY
     Route: 048
     Dates: start: 20110427, end: 20120427
  3. MINIAS 2,5 MG/ML GOCCE ORALI, SOLUZIONE - BAYER S.P.A. [Suspect]
     Indication: INSOMNIA
     Dosage: 4 MG DAILY
     Route: 048
     Dates: start: 20110427, end: 20120427

REACTIONS (1)
  - Drug dependence [Recovering/Resolving]
